FAERS Safety Report 12188733 (Version 1)
Quarter: 2016Q1

REPORT INFORMATION
  Report Type: Spontaneous
  Country: US (occurrence: None)
  Receive Date: 20160317
  Receipt Date: 20160317
  Transmission Date: 20160526
  Serious: Yes (Other)
  Sender: FDA-Public Use
  Company Number: US-MDT-ADR-2016-00448

PATIENT
  Sex: Female

DRUGS (2)
  1. FENTANYL INTRATHECAL 20MG/ML [Suspect]
     Active Substance: FENTANYL
  2. COMPOUNDED BACLOFEN INTRATHECAL 0.15MG/ML [Suspect]
     Active Substance: BACLOFEN
     Indication: PAIN

REACTIONS (33)
  - Depression [None]
  - Hypoaesthesia [None]
  - Neck pain [None]
  - Drug withdrawal syndrome [None]
  - Musculoskeletal discomfort [None]
  - Muscular weakness [None]
  - Muscle spasms [None]
  - Migraine [None]
  - Vertigo [None]
  - Anxiety [None]
  - Back pain [None]
  - Pain in extremity [None]
  - Asthenia [None]
  - Paraesthesia [None]
  - Ataxia [None]
  - Abnormal loss of weight [None]
  - Constipation [None]
  - Post laminectomy syndrome [None]
  - Nuclear magnetic resonance imaging abnormal [None]
  - Lumbar spinal stenosis [None]
  - Fatigue [None]
  - Intervertebral disc degeneration [None]
  - Pain [None]
  - Nausea [None]
  - Libido decreased [None]
  - Myalgia [None]
  - Balance disorder [None]
  - Diabetic neuropathy [None]
  - Musculoskeletal chest pain [None]
  - Musculoskeletal stiffness [None]
  - Spinal pain [None]
  - Abdominal pain [None]
  - Joint stiffness [None]
